FAERS Safety Report 21342912 (Version 3)
Quarter: 2022Q4

REPORT INFORMATION
  Report Type: Spontaneous
  Country: CN (occurrence: None)
  Receive Date: 20220916
  Receipt Date: 20221108
  Transmission Date: 20230113
  Serious: Yes (Hospitalization, Other)
  Sender: FDA-Public Use
  Company Number: 2022A316217

PATIENT
  Age: 80 Year
  Sex: Female
  Weight: 35 kg

DRUGS (6)
  1. NEXIUM [Suspect]
     Active Substance: ESOMEPRAZOLE MAGNESIUM
     Route: 048
  2. NEXIUM [Suspect]
     Active Substance: ESOMEPRAZOLE MAGNESIUM
     Dosage: ONE TABLET IN THE MORNING AND ONE TABLET IN THE EVENING
     Route: 048
  3. CEFDINIR [Concomitant]
     Active Substance: CEFDINIR
     Indication: Productive cough
     Route: 065
  4. ENTRESTO [Concomitant]
     Active Substance: SACUBITRIL\VALSARTAN
     Indication: Cardiac disorder
     Route: 065
  5. FUROSEMIDE [Concomitant]
     Active Substance: FUROSEMIDE
     Indication: Diuretic therapy
     Route: 065
  6. SPIRONOLACTONE [Concomitant]
     Active Substance: SPIRONOLACTONE
     Indication: Diuretic therapy
     Route: 065

REACTIONS (8)
  - Blood creatinine increased [Unknown]
  - Drug intolerance [Unknown]
  - Gastrointestinal haemorrhage [Recovered/Resolved]
  - Faeces hard [Recovering/Resolving]
  - Orthostatic hypotension [Recovered/Resolved]
  - Constipation [Recovering/Resolving]
  - Faecalith [Recovering/Resolving]
  - Coagulopathy [Unknown]
